FAERS Safety Report 13225111 (Version 2)
Quarter: 2017Q1

REPORT INFORMATION
  Report Type: Spontaneous
  Country: FR (occurrence: FR)
  Receive Date: 20170213
  Receipt Date: 20170227
  Transmission Date: 20170428
  Serious: Yes (Hospitalization, Other)
  Sender: FDA-Public Use
  Company Number: FR-009507513-1702FRA004329

PATIENT
  Age: 68 Year
  Sex: Male

DRUGS (13)
  1. EUPANTOL [Suspect]
     Active Substance: PANTOPRAZOLE SODIUM
     Dosage: 20 MG, QD
     Route: 048
     Dates: start: 20170112, end: 20170115
  2. TAHOR [Concomitant]
     Active Substance: ATORVASTATIN CALCIUM
     Dosage: 40 MG, QD
     Route: 048
     Dates: start: 20170112, end: 20170115
  3. BECOTIDE [Concomitant]
     Active Substance: BECLOMETHASONE DIPROPIONATE
     Dosage: 250 MICROGRAM, PER 24 HOURS
     Dates: start: 20170112
  4. SODIUM BICARBONATE. [Concomitant]
     Active Substance: SODIUM BICARBONATE
     Dosage: 500 MG (3/DAY (1-1-1))
     Route: 048
     Dates: start: 20170112
  5. AERIUS [Suspect]
     Active Substance: DESLORATADINE
     Dosage: 5 MG, QD
     Route: 048
     Dates: start: 20170112, end: 20170115
  6. ACETAMINOPHEN. [Concomitant]
     Active Substance: ACETAMINOPHEN
     Dosage: 1000 MG (/8 HOURS IF NEEDED)
     Route: 042
     Dates: start: 20170112
  7. GABAPENTIN. [Suspect]
     Active Substance: GABAPENTIN
     Dosage: 100 MG, TID
     Route: 048
     Dates: start: 20170112, end: 20170115
  8. BRICANYL [Concomitant]
     Active Substance: TERBUTALINE SULFATE
     Dosage: 5 MG, PER 4 HOURS
     Dates: start: 20170112
  9. BISOPROLOL FUMARATE. [Concomitant]
     Active Substance: BISOPROLOL FUMARATE
     Dosage: 1.25 MG, Q12H
     Dates: start: 20170112
  10. DIFFU-K [Concomitant]
     Active Substance: POTASSIUM CHLORIDE
     Dosage: 600 MG (3/DAY (1-1-1))
     Route: 048
     Dates: start: 20170112
  11. CALCIPARINE [Concomitant]
     Active Substance: HEPARIN CALCIUM
     Dosage: 5000 IU (/12 HOURS)
     Route: 058
     Dates: start: 20170112
  12. LASILIX [Concomitant]
     Active Substance: FUROSEMIDE
     Dosage: 20 MG (6 HOURS) ACCORDING TO DIURESIS PROTOCOL
     Route: 042
     Dates: start: 20170112
  13. ASPIRIN. [Concomitant]
     Active Substance: ASPIRIN
     Dosage: 75 MG (EVERY 24 HOURS)
     Route: 048
     Dates: start: 20170112

REACTIONS (1)
  - Neutropenia [Recovered/Resolved]

NARRATIVE: CASE EVENT DATE: 20170113
